FAERS Safety Report 10765195 (Version 2)
Quarter: 2015Q3

REPORT INFORMATION
  Report Type: Report from Study
  Country: US (occurrence: US)
  Receive Date: 20150205
  Receipt Date: 20150810
  Transmission Date: 20151125
  Serious: Yes (Hospitalization)
  Sender: FDA-Public Use
  Company Number: US-GILEAD-2015-0135166

PATIENT
  Age: 77 Year
  Sex: Female

DRUGS (1)
  1. AMBRISENTAN [Suspect]
     Active Substance: AMBRISENTAN
     Indication: PULMONARY ARTERIAL HYPERTENSION
     Dosage: 5 MG, QD
     Route: 065
     Dates: start: 20150101

REACTIONS (8)
  - Syncope [Unknown]
  - Urinary tract infection [Unknown]
  - Nausea [Unknown]
  - Depression [Unknown]
  - Contusion [Unknown]
  - Thinking abnormal [Recovering/Resolving]
  - Incontinence [Recovered/Resolved]
  - Lethargy [Unknown]
